FAERS Safety Report 8606845-6 (Version None)
Quarter: 2012Q3

REPORT INFORMATION
  Report Type: 
  Country: None (occurrence: None)
  Receive Date: 20120820
  Receipt Date: 20120810
  Transmission Date: 20120928
  Serious: Yes (Other)
  Sender: FDA-Public Use
  Company Number: CHPA2012US017917

PATIENT
  Age: 52 Year
  Sex: Female

DRUGS (1)
  1. EXCEDRIN EXTRA STRENGTH CAPLETS [Suspect]
     Dosage: 2 PILLS PRN
     Route: 048

REACTIONS (3)
  - INFECTION [None]
  - LYMPHOEDEMA [None]
  - WRONG TECHNIQUE IN DRUG USAGE PROCESS [None]
